FAERS Safety Report 17924359 (Version 1)
Quarter: 2020Q2

REPORT INFORMATION
  Report Type: Other
  Country: US (occurrence: US)
  Receive Date: 20200622
  Receipt Date: 20200622
  Transmission Date: 20200714
  Serious: No
  Sender: FDA-Public Use
  Company Number: US-ACORDA-ACO_164419_2020

PATIENT
  Sex: Female

DRUGS (3)
  1. CARBIDOPA/LEVODOPA [Concomitant]
     Active Substance: CARBIDOPA\LEVODOPA
     Indication: PRODUCT USED FOR UNKNOWN INDICATION
     Dosage: 3 DOSAGE FORM, 5X/QD
     Route: 065
  2. INBRIJA [Suspect]
     Active Substance: LEVODOPA
     Indication: PARKINSON^S DISEASE
     Dosage: CONTENTS OF TWO CAPSULES (84 MG), PRN NOT TO EXCEED 5 DOSES PER DAY
  3. INBRIJA [Suspect]
     Active Substance: LEVODOPA
     Indication: ON AND OFF PHENOMENON
     Dosage: CONTENTS OF TWO CAPSULES (84 MG), BID
     Dates: start: 202003

REACTIONS (1)
  - Constipation [Unknown]
